FAERS Safety Report 16139252 (Version 1)
Quarter: 2019Q2

REPORT INFORMATION
  Report Type: Spontaneous
  Country: FR (occurrence: FR)
  Receive Date: 20190401
  Receipt Date: 20190401
  Transmission Date: 20190711
  Serious: Yes (Hospitalization)
  Sender: FDA-Public Use
  Company Number: FR-TEVA-2019-FR-1029301

PATIENT
  Age: 71 Year
  Sex: Male
  Weight: 85 kg

DRUGS (15)
  1. PIPERACILLINE TAZOBACTAM MYLAN [Suspect]
     Active Substance: PIPERACILLIN SODIUM\TAZOBACTAM SODIUM
     Indication: ENDOCARDITIS
     Dosage: 3 DOSAGE FORMS DAILY;
     Route: 041
     Dates: start: 20190201
  2. FUROSEMIDE. [Concomitant]
     Active Substance: FUROSEMIDE
  3. PREVISCAN 20 MG, COMPRIM? S?CABLE [Suspect]
     Active Substance: FLUINDIONE
     Indication: ATRIAL FIBRILLATION
     Dosage: .25 DOSAGE FORMS DAILY;
     Route: 048
     Dates: end: 20190203
  4. ATROVENT [Concomitant]
     Active Substance: IPRATROPIUM BROMIDE
  5. MOVICOL [Concomitant]
     Active Substance: POLYETHYLENE GLYCOL 3350\POTASSIUM CHLORIDE\SODIUM BICARBONATE\SODIUM CHLORIDE
  6. COLCHICINE OPOCALCIUM 1 MG, COMPRIM? [Suspect]
     Active Substance: COLCHICINE
     Indication: GOUT
     Dosage: 1 DOSAGE FORMS DAILY;
     Route: 048
     Dates: start: 20190202, end: 20190202
  7. IMOVANE [Suspect]
     Active Substance: ZOPICLONE
     Indication: SLEEP DISORDER
     Dosage: 1 DOSAGE FORMS DAILY;
     Route: 048
     Dates: start: 20190201, end: 20190202
  8. BRICANYL [Suspect]
     Active Substance: TERBUTALINE SULFATE
     Indication: DYSPNOEA
     Dosage: 6 DOSAGE FORMS DAILY;
     Route: 055
     Dates: start: 20190202, end: 20190205
  9. ACIDE FOLIQUE [Concomitant]
     Active Substance: FOLIC ACID
  10. TRAMADOL (CHLORHYDRATE DE) [Suspect]
     Active Substance: TRAMADOL HYDROCHLORIDE
     Indication: PAIN
     Dosage: 300 MILLIGRAM DAILY;
     Route: 048
     Dates: end: 20190203
  11. BISOPROLOL (HEMIFUMARATE DE) [Concomitant]
     Active Substance: BISOPROLOL FUMARATE
  12. DIFFU K, G?LULE [Concomitant]
     Active Substance: POTASSIUM CHLORIDE
  13. ROSUVASTATINE [Concomitant]
     Active Substance: ROSUVASTATIN
  14. PREGABALINE MYLAN 25 MG, G?LULE [Suspect]
     Active Substance: PREGABALIN
     Indication: PRODUCT USED FOR UNKNOWN INDICATION
     Dosage: 2 DOSAGE FORMS DAILY;
     Route: 048
     Dates: end: 20190203
  15. DAPTOMYCINE ACCORD [Suspect]
     Active Substance: DAPTOMYCIN
     Indication: ENDOCARDITIS
     Dosage: 850 MILLIGRAM DAILY;
     Route: 041
     Dates: start: 20190201

REACTIONS (2)
  - Confusional state [Recovered/Resolved]
  - Acute kidney injury [Recovered/Resolved]

NARRATIVE: CASE EVENT DATE: 20190203
